FAERS Safety Report 15339632 (Version 3)
Quarter: 2019Q3

REPORT INFORMATION
  Report Type: Spontaneous
  Country: US (occurrence: US)
  Receive Date: 20180831
  Receipt Date: 20190814
  Transmission Date: 20191004
  Serious: Yes (Hospitalization, Other)
  Sender: FDA-Public Use
  Company Number: US-PFIZER INC-2018346744

PATIENT
  Age: 47 Year
  Sex: Female

DRUGS (1)
  1. IBRANCE [Suspect]
     Active Substance: PALBOCICLIB
     Dosage: 125 MG, CYCLIC (1 CAPSULE Q DAY X 21, 7 DAYS OFF)
     Dates: start: 20170607

REACTIONS (11)
  - Pneumonia [Unknown]
  - Seizure [Unknown]
  - White blood cell count decreased [Unknown]
  - Headache [Unknown]
  - Gait disturbance [Unknown]
  - Cancer pain [Unknown]
  - Eating disorder [Unknown]
  - Blood pressure decreased [Unknown]
  - Nausea [Unknown]
  - Diarrhoea [Unknown]
  - Vomiting [Unknown]
